FAERS Safety Report 12548165 (Version 2)
Quarter: 2016Q3

REPORT INFORMATION
  Report Type: Spontaneous
  Country: US (occurrence: US)
  Receive Date: 20160712
  Receipt Date: 20160808
  Transmission Date: 20161109
  Serious: Yes (Other)
  Sender: FDA-Public Use
  Company Number: US-PFIZER INC-2016306315

PATIENT
  Age: 44 Year
  Sex: Female
  Weight: 45.35 kg

DRUGS (4)
  1. NEUPOGEN [Concomitant]
     Active Substance: FILGRASTIM
     Dosage: UNK
  2. NEULASTA [Concomitant]
     Active Substance: PEGFILGRASTIM
     Dosage: UNK
  3. IBRANCE [Suspect]
     Active Substance: PALBOCICLIB
     Dosage: 100 MG, UNK
     Route: 048
     Dates: start: 20160711
  4. IBRANCE [Suspect]
     Active Substance: PALBOCICLIB
     Indication: BREAST CANCER METASTATIC
     Dosage: 125 MG DAILY, DAY 1-21, EVERY 28 DAYS
     Route: 048
     Dates: start: 20160509, end: 20160613

REACTIONS (7)
  - Weight decreased [Unknown]
  - Oral pain [Recovering/Resolving]
  - Dysphagia [Unknown]
  - Mouth ulceration [Unknown]
  - Neutropenia [Recovered/Resolved]
  - Feeding disorder [Unknown]
  - Dehydration [Unknown]

NARRATIVE: CASE EVENT DATE: 20160516
